FAERS Safety Report 23512577 (Version 2)
Quarter: 2024Q1

REPORT INFORMATION
  Report Type: Spontaneous
  Country: IT (occurrence: IT)
  Receive Date: 20240212
  Receipt Date: 20240214
  Transmission Date: 20240409
  Serious: Yes (Other)
  Sender: FDA-Public Use
  Company Number: IT-MLMSERVICE-20240129-4800167-1

PATIENT
  Age: 3 Year
  Sex: Female

DRUGS (13)
  1. ADRIAMYCIN [Suspect]
     Active Substance: DOXORUBICIN HYDROCHLORIDE
     Indication: Neuroblastoma
     Dosage: 90 MG/M2, CYCLIC (90 MG/MQ)
  2. CARBOPLATIN [Suspect]
     Active Substance: CARBOPLATIN
     Indication: Neuroblastoma
     Dosage: 1500 MG/M2, CYCLIC (1500 MG/MQ)
  3. CISPLATIN [Suspect]
     Active Substance: CISPLATIN
     Indication: Neuroblastoma
     Dosage: 320 MG/M2, CYCLIC (320 MG/MQ)
  4. IRINOTECAN HYDROCHLORIDE [Suspect]
     Active Substance: IRINOTECAN HYDROCHLORIDE
     Indication: Neuroblastoma
     Dosage: 2000 MG/M2, CYCLIC [2000 MG/MQ FOUR COURSES OF TEMOZOLOMIDE-IRINOTECAN (TEMIRI)]
  5. IRINOTECAN HYDROCHLORIDE [Suspect]
     Active Substance: IRINOTECAN HYDROCHLORIDE
     Dosage: UNK, CYCLIC, FIVE COURSES OF  TEMIRI AND DINUTUXIMAB BETA
  6. TOPOTECAN [Suspect]
     Active Substance: TOPOTECAN HYDROCHLORIDE
     Indication: Neuroblastoma
     Dosage: 15 MG/M2, CYCLIC (15 MG/MQ)
  7. VINCRISTINE SULFATE [Suspect]
     Active Substance: VINCRISTINE SULFATE
     Indication: Neuroblastoma
     Dosage: 13.5 MG/M2, CYCLIC (13.5 MG/MQ)
  8. BUSULFAN [Suspect]
     Active Substance: BUSULFAN
     Indication: Neuroblastoma
     Dosage: 19.2 MG/M2, CYCLIC (19.2 MG/MQ)
  9. CYCLOPHOSPHAMIDE [Suspect]
     Active Substance: CYCLOPHOSPHAMIDE
     Indication: Neuroblastoma
     Dosage: 4200 MG/M2, CYCLIC (4200 MG/MQ)
  10. DINUTUXIMAB BETA [Suspect]
     Active Substance: DINUTUXIMAB BETA
     Indication: Neuroblastoma
     Dosage: 350 MG/M2, CYCLIC (350 MG/MQ FIVE COURSES OF  TEMIRI AND DINUTUXIMAB BETA)
  11. ETOPOSIDE [Suspect]
     Active Substance: ETOPOSIDE
     Indication: Neuroblastoma
     Dosage: 1400 MG/M2, CYCLIC (1400 MG/MQ)
  12. MELPHALAN [Suspect]
     Active Substance: MELPHALAN
     Indication: Neuroblastoma
     Dosage: 250 MG/M2, CYCLIC (250 MG/MQ)
  13. TEMOZOLOMIDE [Suspect]
     Active Substance: TEMOZOLOMIDE
     Indication: Neuroblastoma
     Dosage: 2500 MG/M2, CYCLIC  [(2500 MG/MQ FOUR COURSES OF TEMOZOLOMIDE-IRINOTECAN (TEMIRI)]

REACTIONS (3)
  - Second primary malignancy [Unknown]
  - Acute myeloid leukaemia [Unknown]
  - Off label use [Unknown]
